FAERS Safety Report 12331077 (Version 2)
Quarter: 2016Q2

REPORT INFORMATION
  Report Type: Other
  Country: None (occurrence: TR)
  Receive Date: 20160504
  Receipt Date: 20160516
  Transmission Date: 20160815
  Serious: Yes (Hospitalization)
  Sender: FDA-Public Use
  Company Number: TR-MERCK KGAA-1051401

PATIENT

DRUGS (1)
  1. NOVOTHYROX [Suspect]
     Active Substance: LEVOTHYROXINE SODIUM

REACTIONS (6)
  - Blood thyroid stimulating hormone increased [None]
  - Blood parathyroid hormone decreased [None]
  - Acute kidney injury [None]
  - Rhabdomyolysis [None]
  - Blood triglycerides increased [None]
  - Hypocalcaemia [None]
